FAERS Safety Report 8765528 (Version 1)
Quarter: 2012Q4

REPORT INFORMATION
  Report Type: 
  Country: US (occurrence: US)
  Receive Date: 20120903
  Receipt Date: 20120903
  Transmission Date: 20130627
  Serious: No
  Sender: FDA-Public Use
  Company Number: US-BAYER-2012-090201

PATIENT
  Age: 83 Year
  Sex: Female
  Weight: 74.83 kg

DRUGS (12)
  1. ALEVE CAPLET/TABLET,MIDOL EXTENDED RELIEF CAPLET [Suspect]
     Indication: ANALGESIC THERAPY
     Dosage: 1 DF, PRN
     Route: 048
     Dates: start: 20120828
  2. PROTONIX [Concomitant]
  3. DILTIAZEM CD [Concomitant]
  4. DETROL LA [Concomitant]
  5. BENICAR [Concomitant]
  6. ASPIRIN [Concomitant]
  7. TRIMETHOPRIM [Concomitant]
  8. MULTIPLE VITAMINS [Concomitant]
  9. MIRALAX [Concomitant]
  10. NASONEX [Concomitant]
  11. ZYRTEC [Concomitant]
  12. NITROFURANTOIN [Concomitant]

REACTIONS (3)
  - Acne [Recovered/Resolved]
  - Pruritus [Not Recovered/Not Resolved]
  - Rash [Recovered/Resolved]
